FAERS Safety Report 19865591 (Version 1)
Quarter: 2021Q3

REPORT INFORMATION
  Report Type: Spontaneous
  Country: US (occurrence: US)
  Receive Date: 20210920
  Receipt Date: 20210920
  Transmission Date: 20211014
  Serious: Yes (Hospitalization)
  Sender: FDA-Public Use
  Company Number: None

PATIENT
  Sex: Female

DRUGS (3)
  1. SILDENAFIL SUSPENSION 10MG/ML ACTAVIS PHARMA [Suspect]
     Active Substance: SILDENAFIL
     Indication: BRONCHIAL DISORDER
     Route: 048
     Dates: start: 20210323
  2. SILDENAFIL SUSPENSION 10MG/ML ACTAVIS PHARMA [Suspect]
     Active Substance: SILDENAFIL
     Indication: CONGENITAL CORONARY ARTERY MALFORMATION
     Route: 048
     Dates: start: 20210323
  3. SILDENAFIL SUSPENSION 10MG/ML ACTAVIS PHARMA [Suspect]
     Active Substance: SILDENAFIL
     Indication: RESPIRATORY TRACT MALFORMATION
     Route: 048
     Dates: start: 20210323

REACTIONS (1)
  - Brain death [None]
